FAERS Safety Report 9579858 (Version 7)
Quarter: 2015Q3

REPORT INFORMATION
  Report Type: Spontaneous
  Country: TR (occurrence: TR)
  Receive Date: 20131002
  Receipt Date: 20150714
  Transmission Date: 20151125
  Serious: Yes (Other)
  Sender: FDA-Public Use
  Company Number: TR-AMGEN-TURSP2012016833

PATIENT
  Age: 52 Year
  Sex: Male

DRUGS (3)
  1. ENBREL [Suspect]
     Active Substance: ETANERCEPT
     Indication: ANKYLOSING SPONDYLITIS
     Dosage: 50 MG, WEEKLY
     Route: 058
     Dates: start: 20110615, end: 20140527
  2. ENBREL [Suspect]
     Active Substance: ETANERCEPT
     Dosage: UNK
     Route: 065
     Dates: start: 201405, end: 201408
  3. ENBREL [Suspect]
     Active Substance: ETANERCEPT
     Dosage: 50 MG, 2X/WEEK
     Route: 058
     Dates: start: 201408, end: 20150119

REACTIONS (9)
  - Benign neoplasm of adrenal gland [Not Recovered/Not Resolved]
  - Intestinal cyst [Recovered/Resolved]
  - Injection site haemorrhage [Recovered/Resolved]
  - Prostatomegaly [Unknown]
  - Calculus bladder [Recovered/Resolved]
  - Injection site pain [Not Recovered/Not Resolved]
  - Skin disorder [Recovered/Resolved]
  - Renal cyst [Not Recovered/Not Resolved]
  - Fungal infection [Recovered/Resolved]

NARRATIVE: CASE EVENT DATE: 20120307
